FAERS Safety Report 6734166-5 (Version None)
Quarter: 2010Q2

REPORT INFORMATION
  Report Type: 
  Country: None (occurrence: None)
  Receive Date: 20100520
  Receipt Date: 20100511
  Transmission Date: 20101027
  Serious: Yes (Hospitalization)
  Sender: FDA-Public Use
  Company Number: GXKR2010ES05356

PATIENT
  Age: 58 Year
  Sex: Female

DRUGS (1)
  1. PREDNISONE TAB [Suspect]
     Dosage: 60 UNK, UNK
     Route: 065

REACTIONS (4)
  - EUPHORIC MOOD [None]
  - MANIA [None]
  - PSYCHOTIC DISORDER [None]
  - SLEEP DISORDER [None]
